FAERS Safety Report 8098927-5 (Version None)
Quarter: 2012Q1

REPORT INFORMATION
  Report Type: 
  Country: None (occurrence: None)
  Receive Date: 20120129
  Receipt Date: 20110928
  Transmission Date: 20120608
  Serious: No
  Sender: FDA-Public Use
  Company Number: US-ABBOTT-11P-163-0857996-00

PATIENT
  Age: 53 Year
  Sex: Female

DRUGS (1)
  1. HUMIRA [Suspect]
     Indication: RHEUMATOID ARTHRITIS
     Dates: end: 20110909

REACTIONS (8)
  - NASOPHARYNGITIS [None]
  - PAIN IN EXTREMITY [None]
  - HEAD INJURY [None]
  - PAIN [None]
  - FEELING ABNORMAL [None]
  - ABASIA [None]
  - ARTHRALGIA [None]
  - INFLUENZA [None]
